FAERS Safety Report 21691813 (Version 1)
Quarter: 2022Q4

REPORT INFORMATION
  Report Type: Spontaneous
  Country: CN (occurrence: CN)
  Receive Date: 20221207
  Receipt Date: 20221207
  Transmission Date: 20230113
  Serious: Yes (Disabling, Other)
  Sender: FDA-Public Use
  Company Number: None

PATIENT
  Age: 66 Year
  Sex: Male
  Weight: 48 kg

DRUGS (11)
  1. CYCLOPHOSPHAMIDE [Suspect]
     Active Substance: CYCLOPHOSPHAMIDE
     Indication: Lymphoma
     Dosage: 1.4 G, ONCE DAILY, DILUTED WITH 500 ML OF 0.9 % SODIUM CHLORIDE
     Route: 041
     Dates: start: 20221001, end: 20221001
  2. SODIUM CHLORIDE [Suspect]
     Active Substance: SODIUM CHLORIDE
     Indication: Vehicle solution use
     Dosage: 20 ML, USED TO DILUTE 2 MG OF VINCRISTINE SULFATE
     Route: 042
     Dates: start: 20221001, end: 20221001
  3. RITUXIMAB [Suspect]
     Active Substance: RITUXIMAB
     Indication: Lymphoma
     Dosage: 50 MG, ONCE DAILY, DOMESTIC, DILUTED WITH 50 ML OF 0.9 % SODIUM CHLORIDE
     Route: 041
     Dates: start: 20220930, end: 20220930
  4. RITUXIMAB [Suspect]
     Active Substance: RITUXIMAB
     Dosage: 500 MG, ONCE DAILY, DOMESTIC, DILUTED WITH 500 ML OF 0.9 % SODIUM CHLORIDE
     Route: 041
     Dates: start: 20220930, end: 20220930
  5. RITUXIMAB [Suspect]
     Active Substance: RITUXIMAB
     Dosage: 100 MG, ONCE DAILY, DOMESTIC, DILUTED WITH 100 ML OF 0.9 % SODIUM CHLORIDE
     Route: 041
     Dates: start: 20220930, end: 20220930
  6. DOXORUBICIN [Suspect]
     Active Substance: DOXORUBICIN
     Indication: Lymphoma
     Dosage: 90 MG, ONCE DAILY, DILUTED WITH 250 ML OF 5 % GLUCOSE
     Route: 041
     Dates: start: 20221001, end: 20221001
  7. SODIUM CHLORIDE [Concomitant]
     Active Substance: SODIUM CHLORIDE
     Indication: Vehicle solution use
     Dosage: 500 ML, ONCE DAILY, USED TO DILUTE 1.4 G CYCLOPHOSPHAMIDE
     Route: 041
     Dates: start: 20221001, end: 20221001
  8. SODIUM CHLORIDE [Concomitant]
     Active Substance: SODIUM CHLORIDE
     Dosage: 50 ML, ONCE DAILY, USED TO DILUTE 50 MG RITUXIMAB
     Route: 041
     Dates: start: 20220930, end: 20220930
  9. SODIUM CHLORIDE [Concomitant]
     Active Substance: SODIUM CHLORIDE
     Dosage: 100 ML, ONCE DAILY, USED TO DILUTE 100 MG RITUXIMAB
     Route: 041
     Dates: start: 20220930, end: 20220930
  10. SODIUM CHLORIDE [Concomitant]
     Active Substance: SODIUM CHLORIDE
     Dosage: 500 ML, ONCE DAILY, USED TO DILUTE 500 MG RITUXIMAB
     Route: 041
     Dates: start: 20220930, end: 20220930
  11. DEXTROSE [Concomitant]
     Active Substance: DEXTROSE
     Indication: Vehicle solution use
     Dosage: 250 ML, ONCE DAILY, USED TO DILUTE 90 MG DOXORUBICIN
     Route: 041
     Dates: start: 20221001, end: 20221001

REACTIONS (2)
  - White blood cell count decreased [Recovering/Resolving]
  - Granulocyte count decreased [Recovering/Resolving]

NARRATIVE: CASE EVENT DATE: 20221002
